FAERS Safety Report 20376533 (Version 2)
Quarter: 2022Q1

REPORT INFORMATION
  Report Type: Spontaneous
  Country: JP (occurrence: JP)
  Receive Date: 20220125
  Receipt Date: 20220329
  Transmission Date: 20220424
  Serious: Yes (Other)
  Sender: FDA-Public Use
  Company Number: JP-ONO-2022JP001649

PATIENT
  Age: 67 Year
  Sex: Female
  Weight: 59 kg

DRUGS (11)
  1. BRAFTOVI [Suspect]
     Active Substance: ENCORAFENIB
     Indication: Malignant melanoma
     Dosage: 450 MG, EVERYDAY
     Route: 048
     Dates: start: 20211115, end: 20211207
  2. BRAFTOVI [Suspect]
     Active Substance: ENCORAFENIB
     Dosage: 300 MG, EVERYDAY
     Route: 048
     Dates: start: 20211208, end: 20211210
  3. BRAFTOVI [Suspect]
     Active Substance: ENCORAFENIB
     Dosage: 200 MG, EVERYDAY
     Route: 048
     Dates: start: 20211217, end: 20211218
  4. MEKTOVI [Suspect]
     Active Substance: BINIMETINIB
     Indication: Malignant melanoma
     Dosage: 45 MG, Q12H
     Route: 048
     Dates: start: 20211115, end: 20211207
  5. MEKTOVI [Suspect]
     Active Substance: BINIMETINIB
     Dosage: 30 MG, Q12H
     Route: 048
     Dates: start: 20211208, end: 20211210
  6. MEKTOVI [Suspect]
     Active Substance: BINIMETINIB
     Dosage: 20 MG, Q12H
     Route: 048
     Dates: start: 20211217, end: 20211218
  7. OPDIVO [Suspect]
     Active Substance: NIVOLUMAB
     Indication: Malignant melanoma
     Dosage: 240 MG
     Route: 041
     Dates: start: 20210127, end: 20211006
  8. OPDIVO [Suspect]
     Active Substance: NIVOLUMAB
     Dosage: UNK
     Route: 041
  9. LEVOTHYROXINE [Concomitant]
     Active Substance: LEVOTHYROXINE
     Dosage: 75 ?G, EVERYDAY
     Route: 048
     Dates: start: 202104
  10. URSO [Concomitant]
     Active Substance: URSODIOL
     Dosage: 200 MG, Q8H
     Route: 048
  11. REBAMIPIDE [Concomitant]
     Active Substance: REBAMIPIDE
     Dosage: 100 MG, Q8H
     Route: 048

REACTIONS (7)
  - Serous retinal detachment [Recovering/Resolving]
  - Hypothyroidism [Unknown]
  - Vomiting [Unknown]
  - Pyrexia [Recovered/Resolved]
  - Aspartate aminotransferase increased [Recovered/Resolved]
  - Alanine aminotransferase increased [Recovered/Resolved]
  - Nausea [Recovered/Resolved]

NARRATIVE: CASE EVENT DATE: 20210401
